FAERS Safety Report 25814575 (Version 1)
Quarter: 2025Q3

REPORT INFORMATION
  Report Type: Spontaneous
  Country: CA (occurrence: CA)
  Receive Date: 20250917
  Receipt Date: 20250917
  Transmission Date: 20251021
  Serious: Yes (Hospitalization, Other)
  Sender: B. BRAUN MEDICAL INC.
  Company Number: CA-B. Braun Medical Inc.-CA-BBM-202503556

PATIENT
  Age: 35 Year
  Sex: Female

DRUGS (3)
  1. BUPIVACAINE [Suspect]
     Active Substance: BUPIVACAINE
     Indication: Spinal anaesthesia
  2. FENTANYL [Suspect]
     Active Substance: FENTANYL
     Indication: Spinal anaesthesia
  3. MORPHINE [Suspect]
     Active Substance: MORPHINE
     Indication: Spinal anaesthesia

REACTIONS (3)
  - Subdural haematoma [Recovered/Resolved with Sequelae]
  - Post lumbar puncture syndrome [Recovered/Resolved]
  - Maternal exposure during delivery [Recovered/Resolved]
